FAERS Safety Report 6266319-7 (Version None)
Quarter: 2009Q3

REPORT INFORMATION
  Report Type: 
  Country: None (occurrence: None)
  Receive Date: 20090713
  Receipt Date: 20090707
  Transmission Date: 20100115
  Serious: Yes (Life-Threatening, Other)
  Sender: FDA-Public Use
  Company Number: PHEH2009US04187

PATIENT
  Sex: Female

DRUGS (7)
  1. GLEEVEC [Interacting]
     Dosage: 400 MG, UNK
     Dates: start: 20080901, end: 20090401
  2. SPRYCEL [Suspect]
  3. METFORMIN HCL [Interacting]
  4. ANTIBIOTICS [Interacting]
  5. ANALGESICS [Suspect]
  6. IBUPROFEN [Interacting]
  7. AMBIEN [Interacting]

REACTIONS (25)
  - AMNESIA [None]
  - ANXIETY [None]
  - ASTHENIA [None]
  - BLOOD COUNT ABNORMAL [None]
  - COGNITIVE DISORDER [None]
  - CONFUSIONAL STATE [None]
  - COUGH [None]
  - DEPRESSION [None]
  - DIPLOPIA [None]
  - DIZZINESS [None]
  - DRUG INTERACTION [None]
  - EUSTACHIAN TUBE DISORDER [None]
  - FATIGUE [None]
  - FEELING ABNORMAL [None]
  - FLUID RETENTION [None]
  - INSOMNIA [None]
  - MALAISE [None]
  - MENTAL DISORDER [None]
  - OEDEMA PERIPHERAL [None]
  - RESPIRATORY DISORDER [None]
  - THORACIC CAVITY DRAINAGE [None]
  - TREMOR [None]
  - VERTIGO [None]
  - VISION BLURRED [None]
  - WEIGHT INCREASED [None]
